FAERS Safety Report 18549864 (Version 1)
Quarter: 2020Q4

REPORT INFORMATION
  Report Type: Spontaneous
  Country: US (occurrence: US)
  Receive Date: 20201126
  Receipt Date: 20201126
  Transmission Date: 20210114
  Serious: Yes (Hospitalization, Other)
  Sender: FDA-Public Use
  Company Number: US-ABBVIE-20K-163-3666493-00

PATIENT
  Age: 68 Year
  Sex: Male

DRUGS (5)
  1. QUETIAPINE. [Concomitant]
     Active Substance: QUETIAPINE
     Indication: PRODUCT USED FOR UNKNOWN INDICATION
  2. MIRTAZAPINE. [Concomitant]
     Active Substance: MIRTAZAPINE
     Indication: PRODUCT USED FOR UNKNOWN INDICATION
  3. BENZTROPINE MESILATE [Concomitant]
     Active Substance: BENZTROPINE MESYLATE
     Indication: PRODUCT USED FOR UNKNOWN INDICATION
  4. MEMANTINE. [Concomitant]
     Active Substance: MEMANTINE
     Indication: PRODUCT USED FOR UNKNOWN INDICATION
  5. VALPROIC ACID. [Suspect]
     Active Substance: VALPROIC ACID
     Indication: GENERALISED TONIC-CLONIC SEIZURE
     Route: 065

REACTIONS (6)
  - Eosinophilic pleural effusion [Recovered/Resolved]
  - Weight decreased [Recovered/Resolved]
  - Agitation [Recovered/Resolved]
  - Anaemia [Recovered/Resolved]
  - Decreased appetite [Recovered/Resolved]
  - Asthenia [Recovered/Resolved]
